FAERS Safety Report 5169485-X (Version None)
Quarter: 2006Q4

REPORT INFORMATION
  Report Type: 
  Country: None (occurrence: None)
  Receive Date: 20061204
  Receipt Date: 20061127
  Transmission Date: 20070319
  Serious: Yes (Hospitalization)
  Sender: FDA-Public Use
  Company Number: T05-USA-00114-01

PATIENT
  Age: 43 Year
  Sex: Female
  Weight: 76.2043 kg

DRUGS (20)
  1. LEXAPRO [Suspect]
     Indication: DEPRESSION
     Dosage: 10 MG QD PO
     Route: 048
     Dates: start: 20040710
  2. LEXAPRO [Suspect]
     Indication: DEPRESSION
     Dosage: 5 MG QD PO
     Route: 048
     Dates: start: 20040624, end: 20040709
  3. LEXAPRO [Suspect]
     Indication: DEPRESSION
     Dosage: 10 MG QD PO
     Route: 048
     Dates: start: 20040513, end: 20040623
  4. MULTI-VITAMIN [Concomitant]
  5. CALCIUM [Concomitant]
  6. PEGASYS [Concomitant]
  7. RIBAVIRIN [Concomitant]
  8. DOXYCYCLINE [Concomitant]
  9. TRAZODONE HCL [Concomitant]
  10. NEXIUM [Concomitant]
  11. TYLENOL [Concomitant]
  12. GENERIC SLEEP AID [Concomitant]
  13. IBUPROFEN [Concomitant]
  14. PEPTO-BISMOL [Concomitant]
  15. TYLENOL PM [Concomitant]
  16. OTC ANTI-NAUSEA LIQUID [Concomitant]
  17. OTC ANTACID [Concomitant]
  18. ADVIL [Concomitant]
  19. LORTAB [Concomitant]
  20. ULTRAM [Concomitant]

REACTIONS (18)
  - ABDOMINAL PAIN LOWER [None]
  - ADNEXA UTERI MASS [None]
  - BACK PAIN [None]
  - BLOOD PRESSURE DIASTOLIC INCREASED [None]
  - BLOOD UREA INCREASED [None]
  - BRONCHITIS [None]
  - GINGIVAL PAIN [None]
  - HEADACHE [None]
  - HEART RATE INCREASED [None]
  - NEUTROPENIA [None]
  - NORMOCHROMIC NORMOCYTIC ANAEMIA [None]
  - OVARIAN NEOPLASM [None]
  - PANCYTOPENIA [None]
  - PELVIC PAIN [None]
  - PRURITUS [None]
  - RECTAL HAEMORRHAGE [None]
  - THERAPY NON-RESPONDER [None]
  - UTERINE ENLARGEMENT [None]
